FAERS Safety Report 8542472-7 (Version None)
Quarter: 2012Q3

REPORT INFORMATION
  Report Type: 
  Country: None (occurrence: None)
  Receive Date: 20120726
  Receipt Date: 20110823
  Transmission Date: 20120928
  Serious: Yes (Other)
  Sender: FDA-Public Use
  Company Number: US-ASTRAZENECA-2009SE19127

PATIENT
  Age: 4126 Day
  Sex: Male

DRUGS (12)
  1. AMPHETAMINE AND DEXTROAMPHETAMINE SALTS [Concomitant]
     Dosage: TAKE 1 TABLET BY M
     Route: 048
     Dates: start: 20060612
  2. EPIPEN [Concomitant]
     Indication: HYPERSENSITIVITY
     Dosage: USE AS DIRECTED PRN
     Dates: start: 20070305
  3. ADDERALL 5 [Concomitant]
     Route: 048
     Dates: start: 20070624
  4. SEROQUEL [Suspect]
     Dosage: 100 TO 600 MG
     Route: 048
     Dates: start: 20060417
  5. SINGULAIR [Concomitant]
     Route: 048
     Dates: start: 20061117
  6. GEODON [Concomitant]
     Dosage: 40 TO 120 MG
     Dates: start: 20060417
  7. TRAZODONE HYDROCHLORIDE [Concomitant]
     Dosage: 50 TO 200 MG
     Dates: start: 20060509
  8. CLONAZEPAM [Concomitant]
     Route: 048
     Dates: start: 20070624
  9. RANITIDINE [Concomitant]
     Indication: GASTROOESOPHAGEAL REFLUX DISEASE
     Dosage: ONE TABLET TWICE DAILY PRN
     Dates: start: 20070727
  10. CLONIDINE [Concomitant]
     Dosage: 0.1 TO 0.3 MG
     Route: 048
     Dates: start: 20060409
  11. LAMICTAL [Concomitant]
     Dosage: 100 TO 200 MG
     Dates: start: 20060417
  12. LISINOPRIL [Concomitant]
     Dates: start: 20070727

REACTIONS (6)
  - TYPE 2 DIABETES MELLITUS [None]
  - HYPERGLYCAEMIA [None]
  - DIABETIC KETOACIDOSIS [None]
  - DIABETIC COMA [None]
  - DIABETES MELLITUS INADEQUATE CONTROL [None]
  - PANCREATITIS [None]
